FAERS Safety Report 24942927 (Version 1)
Quarter: 2025Q1

REPORT INFORMATION
  Report Type: Spontaneous
  Country: CH (occurrence: CH)
  Receive Date: 20250207
  Receipt Date: 20250207
  Transmission Date: 20250409
  Serious: Yes (Hospitalization)
  Sender: PFIZER
  Company Number: None

PATIENT
  Age: 59 Year
  Sex: Male

DRUGS (16)
  1. ALDACTONE [Interacting]
     Active Substance: SPIRONOLACTONE
     Dosage: 200 MG, 1X/DAY (MORNING)
     Route: 048
  2. FLURAZEPAM [Interacting]
     Active Substance: FLURAZEPAM HYDROCHLORIDE
     Dosage: 15 MG, 1X/DAY (EVENING)
     Route: 048
     Dates: end: 20250103
  3. FLURAZEPAM [Interacting]
     Active Substance: FLURAZEPAM HYDROCHLORIDE
     Dosage: 7.5 MG, 1X/DAY
     Route: 048
     Dates: start: 20250104
  4. TORSEMIDE [Interacting]
     Active Substance: TORSEMIDE
     Dosage: 15 MG, 1X/DAY
     Route: 048
  5. OLANZAPINE [Interacting]
     Active Substance: OLANZAPINE
     Dosage: 5 MG, 2X/DAY
     Route: 048
  6. OXAZEPAM [Interacting]
     Active Substance: OXAZEPAM
     Dosage: 15 MG, 2X/DAY
     Route: 048
     Dates: end: 20250104
  7. CODEINE [Interacting]
     Active Substance: CODEINE
     Dosage: 50 MG, 3X/DAY
     Route: 048
  8. ESOMEPRAZOLE [Concomitant]
     Active Substance: ESOMEPRAZOLE
     Dosage: 20 MG, 2X/DAY
     Route: 048
  9. BECOZYME [BIOTIN;CALCIUM PANTOTHENATE;CYANOCOBALAMIN;NICOTINAMIDE;PYRI [Concomitant]
     Dosage: 1 DF, 1X/DAY
     Route: 048
  10. LACTITOL [Concomitant]
     Active Substance: LACTITOL
     Dosage: 30 ML, 3X/DAY
     Route: 048
  11. SODIUM PICOSULFATE [Concomitant]
     Active Substance: SODIUM PICOSULFATE
     Route: 048
  12. NICOTINE [Concomitant]
     Active Substance: NICOTINE
     Dosage: 14 MG, 1X/DAY
     Route: 062
  13. BIPERIDEN [Concomitant]
     Active Substance: BIPERIDEN
     Dosage: 2 MG, 1X/DAY (MORNING)
     Route: 048
  14. THIAMINE HYDROCHLORIDE [Concomitant]
     Active Substance: THIAMINE HYDROCHLORIDE
     Dosage: 100 MG, 1X/DAY
     Route: 048
  15. UMECLIDINIUM BROMIDE\VILANTEROL TRIFENATATE [Concomitant]
     Active Substance: UMECLIDINIUM BROMIDE\VILANTEROL TRIFENATATE
     Dosage: 55/22 MCG INHALATION, 1X/DAY (MORNING)
     Route: 055
  16. EPLERONE [Concomitant]
     Route: 048

REACTIONS (4)
  - Depressed level of consciousness [Recovered/Resolved]
  - Oxygen saturation decreased [Recovered/Resolved]
  - Fall [Not Recovered/Not Resolved]
  - Drug interaction [Not Recovered/Not Resolved]

NARRATIVE: CASE EVENT DATE: 20250103
